FAERS Safety Report 17539549 (Version 2)
Quarter: 2020Q2

REPORT INFORMATION
  Report Type: Spontaneous
  Country: US (occurrence: US)
  Receive Date: 20200313
  Receipt Date: 20200402
  Transmission Date: 20200713
  Serious: No
  Sender: FDA-Public Use
  Company Number: US-PFIZER INC-2020108906

PATIENT
  Age: 46 Year
  Sex: Male

DRUGS (1)
  1. METHOTREXATE SODIUM. [Suspect]
     Active Substance: METHOTREXATE SODIUM
     Dosage: 6 DF, WEEKLY
     Route: 048

REACTIONS (5)
  - Fatigue [Unknown]
  - Vision blurred [Unknown]
  - Arthralgia [Unknown]
  - Malaise [Unknown]
  - Therapeutic product effect incomplete [Unknown]
